FAERS Safety Report 6464239-6 (Version None)
Quarter: 2009Q4

REPORT INFORMATION
  Report Type: 
  Country: None (occurrence: None)
  Receive Date: 20091201
  Receipt Date: 20091127
  Transmission Date: 20100525
  Serious: Yes (Death)
  Sender: FDA-Public Use
  Company Number: PHHY2009IN52138

PATIENT
  Age: 15 Year
  Sex: Male

DRUGS (1)
  1. ASUNRA [Suspect]
     Dosage: 100/400 MG
     Route: 048

REACTIONS (2)
  - CARDIAC SIDEROSIS [None]
  - HEART RATE INCREASED [None]
